FAERS Safety Report 19487654 (Version 1)
Quarter: 2021Q3

REPORT INFORMATION
  Report Type: Spontaneous
  Country: FR (occurrence: FR)
  Receive Date: 20210702
  Receipt Date: 20210702
  Transmission Date: 20211014
  Serious: Yes (Disabling)
  Sender: FDA-Public Use
  Company Number: FR-TEVA-2021-FR-1926690

PATIENT
  Age: 56 Year
  Sex: Male

DRUGS (2)
  1. CISPLATIN. [Suspect]
     Active Substance: CISPLATIN
     Indication: TONSIL CANCER
     Dosage: FIRST COURSE OF CHEMOTHERAPY
     Route: 065
     Dates: start: 20180806, end: 20180810
  2. CISPLATIN. [Suspect]
     Active Substance: CISPLATIN
     Dosage: SECOND COURSE OF CHEMOTHERAPY
     Dates: start: 20180828

REACTIONS (7)
  - Nausea [Unknown]
  - Pruritus [Unknown]
  - Feeding tube user [Unknown]
  - Feeding disorder [Unknown]
  - Weight decreased [Unknown]
  - Acne [Unknown]
  - Rash [Unknown]

NARRATIVE: CASE EVENT DATE: 2018
